FAERS Safety Report 6835357-5 (Version None)
Quarter: 2010Q3

REPORT INFORMATION
  Report Type: 
  Country: None (occurrence: None)
  Receive Date: 20100713
  Receipt Date: 20100704
  Transmission Date: 20110219
  Serious: Yes (Other)
  Sender: FDA-Public Use
  Company Number: DE-JNJFOC-20100700778

PATIENT
  Sex: Female

DRUGS (2)
  1. RISPERDAL [Suspect]
     Indication: PRODUCT USED FOR UNKNOWN INDICATION
     Route: 048
  2. LEPONEX [Suspect]
     Indication: PRODUCT USED FOR UNKNOWN INDICATION
     Route: 048

REACTIONS (7)
  - ACCIDENTAL EXPOSURE [None]
  - DISTURBANCE IN ATTENTION [None]
  - HYPOTENSION [None]
  - HYPOTHERMIA [None]
  - MIOSIS [None]
  - SALIVARY HYPERSECRETION [None]
  - TACHYCARDIA [None]
